FAERS Safety Report 4311986-8 (Version None)
Quarter: 2004Q1

REPORT INFORMATION
  Report Type: 
  Country: None (occurrence: None)
  Receive Date: 20040305
  Receipt Date: 20030807
  Transmission Date: 20041129
  Serious: No
  Sender: FDA-Public Use
  Company Number: US-GLAXOSMITHKLINE-A0422177A

PATIENT
  Age: 67 Year
  Sex: Male

DRUGS (6)
  1. REQUIP [Suspect]
     Indication: PARKINSONISM
     Dosage: 3MG FOUR TIMES PER DAY
     Route: 048
     Dates: start: 20020801
  2. MULTIVITAMIN [Concomitant]
  3. CALCIUM [Concomitant]
  4. GARLIC [Concomitant]
  5. ASPIRIN [Concomitant]
  6. UNSPECIFIED MEDICATION [Concomitant]

REACTIONS (1)
  - TREMOR [None]
